FAERS Safety Report 17988702 (Version 1)
Quarter: 2020Q3

REPORT INFORMATION
  Report Type: Spontaneous
  Country: US (occurrence: US)
  Receive Date: 20200707
  Receipt Date: 20200707
  Transmission Date: 20201103
  Serious: No
  Sender: FDA-Public Use
  Company Number: US-PFIZER INC-2020254514

PATIENT
  Age: 7 Year
  Sex: Male

DRUGS (1)
  1. GENOTROPIN [Suspect]
     Active Substance: SOMATROPIN
     Dosage: 0.7 MG, 1X/DAY [0.7MG/QD (ONCE A DAY)X 7 DAYS/WK]
     Dates: start: 202001

REACTIONS (3)
  - Wrong technique in device usage process [Unknown]
  - Pain [Unknown]
  - Weight decreased [Unknown]
